FAERS Safety Report 20283239 (Version 1)
Quarter: 2022Q1

REPORT INFORMATION
  Report Type: Spontaneous
  Country: CA (occurrence: CA)
  Receive Date: 20220103
  Receipt Date: 20220103
  Transmission Date: 20220423
  Serious: Yes (Hospitalization, Other)
  Sender: FDA-Public Use
  Company Number: CA-SA-SAC20211230000276

PATIENT

DRUGS (5)
  1. RANITIDINE HYDROCHLORIDE [Suspect]
     Active Substance: RANITIDINE HYDROCHLORIDE
     Dosage: UNK
  2. MESALAMINE [Suspect]
     Active Substance: MESALAMINE
     Dosage: UNK
     Route: 064
  3. AZATHIOPRINE [Suspect]
     Active Substance: AZATHIOPRINE
     Dosage: UNK
     Route: 064
  4. ESOMEPRAZOLE MAGNESIUM [Suspect]
     Active Substance: ESOMEPRAZOLE MAGNESIUM
     Dosage: UNK
     Route: 064
  5. FIBRINOGEN [Suspect]
     Active Substance: FIBRINOGEN HUMAN
     Dosage: UNK
     Route: 064

REACTIONS (5)
  - Foetal anaemia [Recovered/Resolved]
  - Foetal growth restriction [Recovered/Resolved]
  - Haemorrhage [Recovered/Resolved]
  - Haemorrhage foetal [Recovered/Resolved]
  - Foetal exposure during pregnancy [Unknown]
